FAERS Safety Report 23235451 (Version 1)
Quarter: 2023Q4

REPORT INFORMATION
  Report Type: Spontaneous
  Country: CA (occurrence: CA)
  Receive Date: 20231128
  Receipt Date: 20231128
  Transmission Date: 20240110
  Serious: Yes (Other)
  Sender: FDA-Public Use
  Company Number: CA-PFIZER INC-202300312919

PATIENT
  Age: 27 Year
  Sex: Female
  Weight: 59 kg

DRUGS (3)
  1. RUXIENCE [Suspect]
     Active Substance: RITUXIMAB-PVVR
     Indication: Granulomatosis with polyangiitis
     Dosage: 1 G NOW (ONCE ONLY) THEN 500 MG EVERY 6 MONTHS.- 1000MG, TREATMENT NAIVE
     Route: 042
     Dates: start: 20231120
  2. IMURAN [Concomitant]
     Active Substance: AZATHIOPRINE
     Dosage: UNK
  3. SEPTRA [Concomitant]
     Active Substance: SULFAMETHOXAZOLE\TRIMETHOPRIM
     Dosage: UNK

REACTIONS (4)
  - Vomiting [Recovered/Resolved]
  - Nausea [Recovered/Resolved]
  - Infusion related reaction [Unknown]
  - Off label use [Unknown]

NARRATIVE: CASE EVENT DATE: 20231120
